FAERS Safety Report 15044803 (Version 1)
Quarter: 2018Q2

REPORT INFORMATION
  Report Type: Spontaneous
  Country: US (occurrence: US)
  Receive Date: 20180621
  Receipt Date: 20180621
  Transmission Date: 20180711
  Serious: No
  Sender: FDA-Public Use
  Company Number: PHEH2018US023910

PATIENT
  Age: 84 Year
  Sex: Female

DRUGS (1)
  1. AFINITOR [Suspect]
     Active Substance: EVEROLIMUS
     Indication: SALIVARY GLAND CANCER
     Dosage: 7.5 MG, QD
     Route: 048
     Dates: start: 201803

REACTIONS (6)
  - Weight decreased [Unknown]
  - Blood urea decreased [Unknown]
  - Blood creatinine decreased [Unknown]
  - Decreased appetite [Unknown]
  - Off label use [Unknown]
  - Movement disorder [Unknown]

NARRATIVE: CASE EVENT DATE: 201806
